FAERS Safety Report 5319355-9 (Version None)
Quarter: 2007Q2

REPORT INFORMATION
  Report Type: 
  Country: None (occurrence: None)
  Receive Date: 20070508
  Receipt Date: 20070501
  Transmission Date: 20071010
  Serious: Yes (Hospitalization, Other)
  Sender: FDA-Public Use
  Company Number: US-ELI_LILLY_AND_COMPANY-US200703003057

PATIENT
  Age: 58 Year
  Sex: Female
  Weight: 73.469 kg

DRUGS (10)
  1. AMARYL [Concomitant]
     Dates: start: 20050901
  2. LANTUS [Concomitant]
     Dates: start: 20060201
  3. SYNTHROID [Concomitant]
     Dates: start: 20050901
  4. NEURONTIN [Concomitant]
     Dates: end: 20060901
  5. CYMBALTA [Concomitant]
     Dates: start: 20060901
  6. METFORMIN HCL [Concomitant]
     Dates: start: 20050901, end: 20060201
  7. BYETTA [Suspect]
     Indication: DIABETES MELLITUS NON-INSULIN-DEPENDENT
     Dosage: 10 UG, 2/D
     Route: 058
     Dates: start: 20070129
  8. BYETTA [Suspect]
     Dosage: 10 UG, 2/D
     Route: 058
     Dates: start: 20051108, end: 20060201
  9. BYETTA [Suspect]
     Dosage: 5 UG, 2/D
     Route: 058
     Dates: start: 20050926, end: 20051108
  10. BYETTA [Suspect]
     Dosage: 5 UG, 2/D
     Route: 058
     Dates: start: 20061005, end: 20070128

REACTIONS (4)
  - HYDRONEPHROSIS [None]
  - INJECTION SITE URTICARIA [None]
  - RENAL FAILURE [None]
  - URETERIC PERFORATION [None]
